FAERS Safety Report 8961694 (Version 1)
Quarter: 2012Q4

REPORT INFORMATION
  Report Type: 
  Country: US (occurrence: US)
  Receive Date: 20121212
  Receipt Date: 20121212
  Transmission Date: 20130627
  Serious: No
  Sender: FDA-Public Use
  Company Number: US-PFIZER INC-2012306600

PATIENT
  Sex: Male

DRUGS (1)
  1. XELJANZ [Suspect]
     Dosage: 5 mg, UNK
     Dates: start: 20121203

REACTIONS (1)
  - Rash [Unknown]
